FAERS Safety Report 4940734-3 (Version None)
Quarter: 2006Q1

REPORT INFORMATION
  Report Type: 
  Country: None (occurrence: None)
  Receive Date: 20060307
  Receipt Date: 20060227
  Transmission Date: 20060701
  Serious: Yes (Death, Life-Threatening)
  Sender: FDA-Public Use
  Company Number: 2006S1000036

PATIENT
  Age: 13 Day
  Sex: Male

DRUGS (19)
  1. INOMAX [Suspect]
     Indication: LUNG DISORDER
     Dosage: 5 PPM;CONT
     Route: 055
     Dates: start: 20060209, end: 20060215
  2. INOMAX [Suspect]
     Indication: PROPHYLAXIS
     Dosage: 5 PPM;CONT
     Route: 055
     Dates: start: 20060209, end: 20060215
  3. NITRIC OXIDE [Suspect]
     Dosage: 20 PPM;CONT
     Route: 055
     Dates: start: 20060215, end: 20060222
  4. CEFOTAXIME [Concomitant]
  5. VANCOMYCIN [Concomitant]
  6. DOMPERIDONE [Concomitant]
  7. TOBRAMYCIN [Concomitant]
  8. RANITIDINE [Concomitant]
  9. FENTANYL [Concomitant]
  10. INSULIN [Concomitant]
  11. ERYTROCYTE [Concomitant]
  12. MEROPENEM [Concomitant]
  13. VANCOMYCIN [Concomitant]
  14. DOPAMINE [Concomitant]
  15. DOBUTAMINE HCL [Concomitant]
  16. EPINEPHRINE [Concomitant]
  17. FUROSEMIDE [Concomitant]
  18. INSULIN [Concomitant]
  19. RANITIDINE [Concomitant]

REACTIONS (11)
  - ANAEMIA NEONATAL [None]
  - DISSEMINATED INTRAVASCULAR COAGULATION [None]
  - GENERALISED OEDEMA [None]
  - HYPERGLYCAEMIA [None]
  - KLEBSIELLA INFECTION [None]
  - NEONATAL DISORDER [None]
  - PERITONEAL DIALYSIS [None]
  - SEPSIS NEONATAL [None]
  - SHOCK [None]
  - STAPHYLOCOCCAL INFECTION [None]
  - STAPHYLOCOCCAL SEPSIS [None]
